FAERS Safety Report 20644751 (Version 2)
Quarter: 2022Q3

REPORT INFORMATION
  Report Type: Spontaneous
  Country: CA (occurrence: CA)
  Receive Date: 20220328
  Receipt Date: 20220713
  Transmission Date: 20221026
  Serious: Yes (Other)
  Sender: FDA-Public Use
  Company Number: CA-GLAXOSMITHKLINE-CA2022GSK053200

PATIENT

DRUGS (1)
  1. ZANTAC [Suspect]
     Active Substance: RANITIDINE HYDROCHLORIDE
     Indication: Gastrooesophageal reflux disease
     Dosage: 150 MG, BID
     Route: 065
     Dates: start: 2000, end: 2019

REACTIONS (14)
  - Ovarian cancer stage IV [Unknown]
  - Neoplasm malignant [Unknown]
  - Adenocarcinoma [Unknown]
  - Metastases to pelvis [Unknown]
  - Metastases to stomach [Unknown]
  - Metastatic lymphoma [Unknown]
  - Metastases to liver [Unknown]
  - Metastases to ovary [Unknown]
  - Metastatic neoplasm [Unknown]
  - Adenocarcinoma metastatic [Unknown]
  - Ovarian cancer [Unknown]
  - Urinary incontinence [Unknown]
  - Dysuria [Unknown]
  - Vaginal discharge [Unknown]
